FAERS Safety Report 13656510 (Version 1)
Quarter: 2017Q2

REPORT INFORMATION
  Report Type: Spontaneous
  Country: RU (occurrence: RU)
  Receive Date: 20170615
  Receipt Date: 20170615
  Transmission Date: 20170830
  Serious: Yes (Life-Threatening, Hospitalization, Other)
  Sender: FDA-Public Use
  Company Number: RU-ASTRAZENECA-2017SE61183

PATIENT
  Age: 935 Month
  Sex: Male

DRUGS (9)
  1. PREDUCTAL A [Concomitant]
  2. VEROSPIRON [Concomitant]
     Active Substance: SPIRONOLACTONE
  3. BETASERC [Concomitant]
     Active Substance: BETAHISTINE
  4. ATORVASTATIN [Concomitant]
     Active Substance: ATORVASTATIN
  5. OMEPRAZOLE. [Concomitant]
     Active Substance: OMEPRAZOLE
  6. TRENTAL [Concomitant]
     Active Substance: PENTOXIFYLLINE
  7. BRILINTA [Suspect]
     Active Substance: TICAGRELOR
     Indication: MYOCARDIAL INFARCTION
     Route: 048
     Dates: start: 201609
  8. ENALAPRIL [Concomitant]
     Active Substance: ENALAPRIL
  9. CARDIOMAGNYL [Concomitant]
     Active Substance: ASPIRIN\MAGNESIUM HYDROXIDE

REACTIONS (3)
  - Acute myocardial infarction [Unknown]
  - Cerebrovascular accident [Unknown]
  - Breast inflammation [Recovered/Resolved]

NARRATIVE: CASE EVENT DATE: 201611
